FAERS Safety Report 20643374 (Version 2)
Quarter: 2024Q1

REPORT INFORMATION
  Report Type: Spontaneous
  Country: IT (occurrence: IT)
  Receive Date: 20220328
  Receipt Date: 20240227
  Transmission Date: 20240409
  Serious: Yes (Other)
  Sender: FDA-Public Use
  Company Number: IT-JNJFOC-20220220500

PATIENT
  Age: 22 Year
  Sex: Female
  Weight: 56 kg

DRUGS (13)
  1. VENLAFAXINE [Suspect]
     Active Substance: VENLAFAXINE HYDROCHLORIDE
     Indication: Product used for unknown indication
     Dosage: UNK, SINGLE
     Route: 048
     Dates: start: 20220207, end: 20220207
  2. VENLAFAXINE [Suspect]
     Active Substance: VENLAFAXINE HYDROCHLORIDE
     Dosage: 150 MILLIGRAM (10 TABLETS)
     Route: 048
  3. LORAZEPAM [Suspect]
     Active Substance: LORAZEPAM
     Indication: Product used for unknown indication
     Dosage: UNK, SINGLE
     Route: 048
     Dates: start: 20220207, end: 20220207
  4. TOPAMAX [Suspect]
     Active Substance: TOPIRAMATE
     Indication: Product used for unknown indication
     Dosage: UNK, SINGLE
     Route: 048
     Dates: start: 20220207, end: 20220207
  5. TOPAMAX [Suspect]
     Active Substance: TOPIRAMATE
     Dosage: 100 MILLIGRAM
     Route: 048
  6. FERROUS SULFATE [Suspect]
     Active Substance: FERROUS SULFATE
     Indication: Product used for unknown indication
     Dosage: UNK, SINGLE
     Route: 048
     Dates: start: 20220207, end: 20220207
  7. FERROUS SULFATE [Suspect]
     Active Substance: FERROUS SULFATE
     Dosage: 80 MILLIGRAM
     Route: 048
  8. VALPROIC ACID [Suspect]
     Active Substance: VALPROIC ACID
     Indication: Product used for unknown indication
     Dosage: 1 DOSAGE FORM, TOTAL (SINGLE)
     Route: 048
     Dates: start: 20220207, end: 20220207
  9. VALPROIC ACID [Suspect]
     Active Substance: VALPROIC ACID
     Dosage: 500 MILLIGRAM (30 TABLETS)
     Route: 048
  10. VALPROIC ACID [Suspect]
     Active Substance: VALPROIC ACID
     Dosage: 300 MILLIGRAM (30 TABLETS)
     Route: 048
  11. TACHIPIRINA [Suspect]
     Active Substance: ACETAMINOPHEN
     Indication: Product used for unknown indication
     Dosage: UNK, SINGLE
     Route: 048
     Dates: start: 20220207, end: 20220207
  12. LITHIUM SULFATE [Suspect]
     Active Substance: LITHIUM SULFATE
     Indication: Product used for unknown indication
     Dosage: 1 DOSAGE FORM, TOTAL (SINGLE)
     Route: 048
     Dates: start: 20220207, end: 20220207
  13. LITHIUM SULFATE [Suspect]
     Active Substance: LITHIUM SULFATE
     Dosage: 83 MILLIGRAM (50 PROLONGED-RELEASE TABLETS)
     Route: 048

REACTIONS (3)
  - Intentional self-injury [Unknown]
  - Overdose [Unknown]
  - Drug abuse [Unknown]

NARRATIVE: CASE EVENT DATE: 20220207
